FAERS Safety Report 22304591 (Version 2)
Quarter: 2023Q2

REPORT INFORMATION
  Report Type: Spontaneous
  Country: None (occurrence: DE)
  Receive Date: 20230510
  Receipt Date: 20230531
  Transmission Date: 20230721
  Serious: Yes (Hospitalization, Disabling, Other)
  Sender: FDA-Public Use
  Company Number: DE-Ascend Therapeutics US, LLC-2141332

PATIENT
  Age: 57 Year
  Sex: Female

DRUGS (4)
  1. ESTROGEL [Suspect]
     Active Substance: ESTRADIOL
     Indication: Hormone replacement therapy
     Route: 065
     Dates: start: 2016
  2. ESTRADIOL HEMIHYDRATE [Suspect]
     Active Substance: ESTRADIOL HEMIHYDRATE
     Route: 065
     Dates: start: 2016
  3. CARBAMAZEPINE [Concomitant]
     Active Substance: CARBAMAZEPINE
     Route: 065
  4. ESTRADIOL HEMIHYDRATE [Suspect]
     Active Substance: ESTRADIOL HEMIHYDRATE
     Route: 065
     Dates: end: 20200909

REACTIONS (7)
  - Meningioma benign [Recovering/Resolving]
  - Hemiplegia [Recovering/Resolving]
  - Coma [Recovered/Resolved]
  - Tumour haemorrhage [Recovered/Resolved]
  - Muscle tightness [Unknown]
  - Headache [Unknown]
  - Cognitive disorder [Recovering/Resolving]
